FAERS Safety Report 7808041-9 (Version None)
Quarter: 2011Q4

REPORT INFORMATION
  Report Type: 
  Country: None (occurrence: None)
  Receive Date: 20111011
  Receipt Date: 20111004
  Transmission Date: 20120403
  Serious: Yes (Other)
  Sender: FDA-Public Use
  Company Number: BR-PFIZER INC-2011237330

PATIENT
  Age: 40 Year
  Sex: Female
  Weight: 80 kg

DRUGS (3)
  1. GAMALINE V [Concomitant]
     Indication: PREMENSTRUAL SYNDROME
     Dosage: UNKNOWN DOSE AFTER LUNCH
  2. VARENICLINE TARTRATE [Suspect]
     Dosage: 1 MG, 2X/DAY (EVERY 12 HOURS)
     Route: 048
     Dates: start: 20110901
  3. VARENICLINE TARTRATE [Suspect]
     Indication: SMOKING CESSATION THERAPY
     Dosage: UNK
     Route: 048
     Dates: start: 20110913, end: 20110901

REACTIONS (3)
  - MAJOR DEPRESSION [None]
  - NERVE COMPRESSION [None]
  - SPINAL CORD COMPRESSION [None]
